FAERS Safety Report 9263020 (Version 1)
Quarter: 2013Q2

REPORT INFORMATION
  Report Type: Spontaneous
  Country: US (occurrence: None)
  Receive Date: 20130426
  Receipt Date: 20130426
  Transmission Date: 20140414
  Serious: Yes (Other)
  Sender: FDA-Public Use
  Company Number: None

PATIENT
  Age: 47 Year
  Sex: Female
  Weight: 61.24 kg

DRUGS (3)
  1. AVELOX, 400 MG, SCHERING CORP [Suspect]
     Indication: EAR INFECTION
     Dosage: ONE TABLET ONCE AT NIGHT
     Route: 048
     Dates: start: 20130402, end: 20130413
  2. AVELOX, 400 MG, SCHERING CORP [Suspect]
     Indication: SINUSITIS
     Dosage: ONE TABLET ONCE AT NIGHT
     Route: 048
     Dates: start: 20130402, end: 20130413
  3. AVELOX, 400 MG, SCHERING CORP [Suspect]
     Indication: PHARYNGITIS
     Dosage: ONE TABLET ONCE AT NIGHT
     Route: 048
     Dates: start: 20130402, end: 20130413

REACTIONS (5)
  - Diarrhoea [None]
  - Abdominal pain [None]
  - Grand mal convulsion [None]
  - Acidosis [None]
  - Therapy cessation [None]
